FAERS Safety Report 9986559 (Version 1)
Quarter: 2014Q1

REPORT INFORMATION
  Report Type: Spontaneous
  Country: DE (occurrence: DE)
  Receive Date: 20140307
  Receipt Date: 20140307
  Transmission Date: 20141002
  Serious: Yes (Other)
  Sender: FDA-Public Use
  Company Number: DE-TEVA-466909GER

PATIENT
  Sex: Female

DRUGS (1)
  1. ESTREVA 0.1% GEL [Suspect]

REACTIONS (4)
  - Retinal vein occlusion [Unknown]
  - Macular oedema [Unknown]
  - Visual acuity reduced [Unknown]
  - Eye haemorrhage [Unknown]
